FAERS Safety Report 8514273-7 (Version None)
Quarter: 2012Q3

REPORT INFORMATION
  Report Type: 
  Country: None (occurrence: None)
  Receive Date: 20120717
  Receipt Date: 20120712
  Transmission Date: 20120928
  Serious: Yes (Other)
  Sender: FDA-Public Use
  Company Number: US-PFIZER INC-2012168411

PATIENT
  Sex: Female
  Weight: 55.8 kg

DRUGS (3)
  1. NEURONTIN [Suspect]
     Indication: PAIN
     Dosage: 300 MG, 3X/DAY
     Route: 048
     Dates: start: 20030101
  2. TRAMADOL [Concomitant]
     Indication: THORACIC OUTLET SYNDROME
     Dosage: UNK, AS NEEDED
  3. NEURONTIN [Suspect]
     Dosage: 600 MG, 3X/DAY
     Route: 048

REACTIONS (4)
  - HYPOKINESIA [None]
  - PAIN [None]
  - MUSCLE SPASMS [None]
  - MOVEMENT DISORDER [None]
